FAERS Safety Report 5958395-3 (Version None)
Quarter: 2008Q4

REPORT INFORMATION
  Report Type: 
  Country: None (occurrence: None)
  Receive Date: 20081119
  Receipt Date: 20081114
  Transmission Date: 20090506
  Serious: Yes (Hospitalization, Other)
  Sender: FDA-Public Use
  Company Number: PHHO2008FR10243

PATIENT
  Sex: Female
  Weight: 76 kg

DRUGS (6)
  1. TASIGNA [Suspect]
     Indication: GASTROINTESTINAL STROMAL TUMOUR
     Dosage: 800 MG
     Route: 048
     Dates: start: 20080131, end: 20080716
  2. NEXAVAR [Suspect]
     Indication: GASTROINTESTINAL STROMAL TUMOUR
     Dosage: 800 MG
     Route: 048
     Dates: start: 20080727, end: 20080808
  3. NUREFLEX [Concomitant]
     Indication: PAIN
  4. LEVOTHYROX [Concomitant]
     Indication: HYPOTHYROIDISM
  5. LOXEN [Concomitant]
  6. MOVICOL [Concomitant]
     Indication: CONSTIPATION

REACTIONS (6)
  - BLOOD THYROID STIMULATING HORMONE INCREASED [None]
  - PSYCHOMOTOR RETARDATION [None]
  - SOMNOLENCE [None]
  - THYROXINE DECREASED [None]
  - TRI-IODOTHYRONINE DECREASED [None]
  - VERTIGO [None]
